FAERS Safety Report 9303077 (Version 2)
Quarter: 2013Q2

REPORT INFORMATION
  Report Type: Report from Study
  Country: NL (occurrence: NL)
  Receive Date: 20130522
  Receipt Date: 20130621
  Transmission Date: 20140414
  Serious: Yes (Hospitalization, Other)
  Sender: FDA-Public Use
  Company Number: NL-PFIZER INC-2013117205

PATIENT
  Age: 75 Year
  Sex: Female
  Weight: 70 kg

DRUGS (4)
  1. CELECOXIB [Suspect]
     Indication: OSTEOARTHRITIS
     Dosage: 200 MG, 2X/DAY
     Route: 048
     Dates: start: 20110630, end: 20130212
  2. ENALAPRIL [Concomitant]
     Indication: HYPERTENSION
     Dosage: 10 MG, 2X/DAY
     Dates: start: 20090407
  3. TEMAZEPAM [Concomitant]
     Indication: SLEEP DISORDER
     Dosage: 10 MG, 1X/DAY
     Dates: start: 20090205
  4. AMLODIPINE [Concomitant]
     Indication: HYPERTENSION
     Dosage: 5 MG, 1X/DAY
     Dates: start: 20090407

REACTIONS (2)
  - Basedow^s disease [Not Recovered/Not Resolved]
  - Atrial fibrillation [Recovered/Resolved]
